FAERS Safety Report 15080715 (Version 2)
Quarter: 2018Q3

REPORT INFORMATION
  Report Type: Spontaneous
  Country: JP (occurrence: JP)
  Receive Date: 20180628
  Receipt Date: 20180719
  Transmission Date: 20181010
  Serious: Yes (Other)
  Sender: FDA-Public Use
  Company Number: JP-ROCHE-2146088

PATIENT
  Age: 44 Year
  Sex: Male

DRUGS (3)
  1. DENOSINE (JAPAN) [Suspect]
     Active Substance: GANCICLOVIR
     Route: 050
  2. PREDNISOLONE. [Suspect]
     Active Substance: PREDNISOLONE
     Indication: CYTOMEGALOVIRUS CHORIORETINITIS
     Route: 048
  3. DENOSINE (JAPAN) [Suspect]
     Active Substance: GANCICLOVIR
     Indication: CYTOMEGALOVIRUS CHORIORETINITIS
     Route: 041

REACTIONS (3)
  - Off label use [Unknown]
  - Bone marrow failure [Unknown]
  - Intentional product use issue [Unknown]
